FAERS Safety Report 21915399 (Version 3)
Quarter: 2023Q2

REPORT INFORMATION
  Report Type: Spontaneous
  Country: JP (occurrence: JP)
  Receive Date: 20230126
  Receipt Date: 20230620
  Transmission Date: 20230722
  Serious: Yes (Hospitalization, Other)
  Sender: FDA-Public Use
  Company Number: JP-CHUGAI-2023002188

PATIENT
  Age: 6 Decade
  Sex: Male

DRUGS (1)
  1. GAZYVA [Suspect]
     Active Substance: OBINUTUZUMAB
     Indication: Product used for unknown indication
     Dosage: 1000MG/DAY
     Route: 041
     Dates: start: 20221130

REACTIONS (2)
  - Myelosuppression [Recovered/Resolved]
  - Coronavirus infection [Recovered/Resolved]
